FAERS Safety Report 4964887-6 (Version None)
Quarter: 2006Q1

REPORT INFORMATION
  Report Type: 
  Country: None (occurrence: None)
  Receive Date: 20060130
  Receipt Date: 20051026
  Transmission Date: 20060701
  Serious: Yes (Hospitalization)
  Sender: FDA-Public Use
  Company Number: 143516USA

PATIENT
  Age: 49 Year
  Sex: Male

DRUGS (3)
  1. COPAXONE [Suspect]
     Indication: MULTIPLE SCLEROSIS
     Dates: start: 19980101
  2. STEROIDS [Concomitant]
  3. TIZANIDINE HCL [Concomitant]

REACTIONS (3)
  - DYSPNOEA [None]
  - LOSS OF CONSCIOUSNESS [None]
  - PULMONARY EMBOLISM [None]
